FAERS Safety Report 6286585-1 (Version None)
Quarter: 2009Q3

REPORT INFORMATION
  Report Type: 
  Country: None (occurrence: None)
  Receive Date: 20090728
  Receipt Date: 20090716
  Transmission Date: 20100115
  Serious: Yes (Other)
  Sender: FDA-Public Use
  Company Number: GB-ELI_LILLY_AND_COMPANY-GB200907003912

PATIENT
  Age: 41 Year
  Sex: Female

DRUGS (2)
  1. BYETTA [Suspect]
     Dosage: 5 UG, UNKNOWN
     Dates: start: 20090101, end: 20090101
  2. BYETTA [Suspect]
     Dosage: 10 UG, UNKNOWN
     Dates: start: 20090101, end: 20090101

REACTIONS (3)
  - ABORTION SPONTANEOUS [None]
  - GLYCOSYLATED HAEMOGLOBIN INCREASED [None]
  - WEIGHT DECREASED [None]
